FAERS Safety Report 20404304 (Version 1)
Quarter: 2022Q1

REPORT INFORMATION
  Report Type: Spontaneous
  Country: FR (occurrence: FR)
  Receive Date: 20220131
  Receipt Date: 20220131
  Transmission Date: 20220423
  Serious: Yes (Life-Threatening)
  Sender: FDA-Public Use
  Company Number: FR-AFSSAPS-AN20220043

PATIENT
  Age: 60 Year
  Sex: Male
  Weight: 62.8 kg

DRUGS (4)
  1. PREGABALIN [Suspect]
     Active Substance: PREGABALIN
     Indication: Anxiety disorder
     Dosage: 150 MILLIGRAM, DAILY, 50MGX3/J
     Route: 048
     Dates: start: 20200228
  2. TROPATEPINE HYDROCHLORIDE [Suspect]
     Active Substance: TROPATEPINE HYDROCHLORIDE
     Indication: Parkinsonism
     Dosage: 20 MILLIGRAM, DAILY
     Route: 048
     Dates: start: 20170522
  3. ZUCLOPENTHIXOL [Suspect]
     Active Substance: ZUCLOPENTHIXOL
     Indication: Psychotic behaviour
     Dosage: 60 GTT DROPS, DAILY
     Route: 048
     Dates: start: 20200427
  4. MIANSERIN HYDROCHLORIDE [Suspect]
     Active Substance: MIANSERIN HYDROCHLORIDE
     Indication: Anxiety disorder
     Dosage: 30 MILLIGRAM, DAILY
     Route: 048
     Dates: start: 20200530

REACTIONS (1)
  - Hypoglycaemic coma [Recovered/Resolved]

NARRATIVE: CASE EVENT DATE: 20211102
